FAERS Safety Report 8978212 (Version 2)
Quarter: 2013Q1

REPORT INFORMATION
  Report Type: Spontaneous
  Country: CH (occurrence: CH)
  Receive Date: 20121221
  Receipt Date: 20130116
  Transmission Date: 20140127
  Serious: Yes (Hospitalization)
  Sender: FDA-Public Use
  Company Number: CH-RANBAXY-2012RR-63309

PATIENT
  Age: 61 Year
  Sex: Female

DRUGS (4)
  1. IBUPROFEN [Suspect]
     Indication: ANALGESIC THERAPY
     Dosage: UNK
     Route: 065
  2. XARELTO [Suspect]
     Indication: PLATELET AGGREGATION INHIBITION
     Dosage: 10 MG/DAY
     Route: 048
  3. DALTEPARINUM [Concomitant]
     Indication: PLATELET AGGREGATION INHIBITION
     Dosage: 2500 IE/DAY
     Route: 065
  4. TRAMADOL [Concomitant]
     Indication: ANALGESIC THERAPY
     Route: 065

REACTIONS (2)
  - Spinal epidural haematoma [Recovered/Resolved]
  - Paraplegia [Recovered/Resolved]
